FAERS Safety Report 23300507 (Version 2)
Quarter: 2025Q2

REPORT INFORMATION
  Report Type: Spontaneous
  Country: CA (occurrence: CA)
  Receive Date: 20231215
  Receipt Date: 20250605
  Transmission Date: 20250717
  Serious: Yes (Death, Life-Threatening, Hospitalization, Disabling, Other)
  Sender: SANOFI AVENTIS
  Company Number: CA-SA-SAC20231214000210

PATIENT
  Age: 44 Year
  Sex: Female

DRUGS (37)
  1. KEVZARA [Suspect]
     Active Substance: SARILUMAB
     Indication: Rheumatoid arthritis
     Route: 058
  2. PREDNISONE [Suspect]
     Active Substance: PREDNISONE
     Indication: Rheumatoid arthritis
     Route: 048
  3. PREDNISONE [Suspect]
     Active Substance: PREDNISONE
     Route: 048
  4. PREDNISONE [Suspect]
     Active Substance: PREDNISONE
     Route: 048
  5. PREDNISONE [Suspect]
     Active Substance: PREDNISONE
     Route: 048
  6. PREDNISONE [Suspect]
     Active Substance: PREDNISONE
     Route: 048
  7. PREDNISONE [Suspect]
     Active Substance: PREDNISONE
     Route: 042
  8. ARAVA [Suspect]
     Active Substance: LEFLUNOMIDE
     Indication: Rheumatoid arthritis
     Route: 048
  9. DICLOFENAC [Suspect]
     Active Substance: DICLOFENAC
     Indication: Product used for unknown indication
     Route: 048
  10. DICLOFENAC [Suspect]
     Active Substance: DICLOFENAC
     Route: 047
  11. CETIRIZINE HYDROCHLORIDE\PSEUDOEPHEDRINE HYDROCHLORIDE [Suspect]
     Active Substance: CETIRIZINE HYDROCHLORIDE\PSEUDOEPHEDRINE HYDROCHLORIDE
     Indication: Rheumatoid arthritis
     Route: 058
  12. CETIRIZINE HYDROCHLORIDE\PSEUDOEPHEDRINE HYDROCHLORIDE [Suspect]
     Active Substance: CETIRIZINE HYDROCHLORIDE\PSEUDOEPHEDRINE HYDROCHLORIDE
     Route: 048
  13. CETIRIZINE HYDROCHLORIDE\PSEUDOEPHEDRINE HYDROCHLORIDE [Suspect]
     Active Substance: CETIRIZINE HYDROCHLORIDE\PSEUDOEPHEDRINE HYDROCHLORIDE
     Route: 005
  14. CHLORHEXIDINE ACETATE [Suspect]
     Active Substance: CHLORHEXIDINE ACETATE
     Indication: Product used for unknown indication
     Route: 048
  15. CHLORHEXIDINE ACETATE [Suspect]
     Active Substance: CHLORHEXIDINE ACETATE
     Route: 002
  16. CHLORHEXIDINE ACETATE [Suspect]
     Active Substance: CHLORHEXIDINE ACETATE
     Route: 061
  17. HYDROCORTISONE ACETATE [Suspect]
     Active Substance: HYDROCORTISONE ACETATE
     Indication: Rheumatoid arthritis
     Route: 061
  18. HYDROCORTISONE ACETATE [Suspect]
     Active Substance: HYDROCORTISONE ACETATE
     Route: 058
  19. DESOXIMETASONE [Suspect]
     Active Substance: DESOXIMETASONE
     Indication: Rheumatoid arthritis
     Route: 048
  20. DICLOFENAC POTASSIUM [Suspect]
     Active Substance: DICLOFENAC POTASSIUM
     Indication: Rheumatoid arthritis
     Route: 048
  21. FOLIC ACID [Suspect]
     Active Substance: FOLIC ACID
     Indication: Rheumatoid arthritis
     Route: 058
  22. FOLIC ACID [Suspect]
     Active Substance: FOLIC ACID
     Route: 048
  23. FOLIC ACID [Suspect]
     Active Substance: FOLIC ACID
     Route: 048
  24. FOLIC ACID [Suspect]
     Active Substance: FOLIC ACID
     Route: 048
  25. FOLIC ACID [Suspect]
     Active Substance: FOLIC ACID
     Route: 048
  26. METHOTREXATE [Suspect]
     Active Substance: METHOTREXATE
     Indication: Rheumatoid arthritis
     Route: 013
  27. METHOTREXATE [Suspect]
     Active Substance: METHOTREXATE
     Route: 048
  28. METHOTREXATE [Suspect]
     Active Substance: METHOTREXATE
     Route: 016
  29. METHOTREXATE [Suspect]
     Active Substance: METHOTREXATE
     Dosage: 20 MG, QD
     Route: 048
  30. PHENYLEPHRINE HYDROCHLORIDE [Suspect]
     Active Substance: PHENYLEPHRINE HYDROCHLORIDE
     Indication: Rheumatoid arthritis
  31. PLAQUENIL [Suspect]
     Active Substance: HYDROXYCHLOROQUINE SULFATE
     Indication: Rheumatoid arthritis
     Dosage: 40 MG, QD
     Route: 048
  32. PLAQUENIL [Suspect]
     Active Substance: HYDROXYCHLOROQUINE SULFATE
     Dosage: 400 MG, QD
     Route: 048
  33. PSEUDOEPHEDRINE HYDROCHLORIDE [Suspect]
     Active Substance: PSEUDOEPHEDRINE HYDROCHLORIDE
     Indication: Rheumatoid arthritis
  34. SULFASALAZINE [Suspect]
     Active Substance: SULFASALAZINE
     Indication: Rheumatoid arthritis
     Dosage: 1 DF, Q5D
     Route: 048
  35. SULFASALAZINE [Suspect]
     Active Substance: SULFASALAZINE
  36. SULFASALAZINE [Suspect]
     Active Substance: SULFASALAZINE
     Dosage: 1000 MG, QD
  37. SULFASALAZINE [Suspect]
     Active Substance: SULFASALAZINE
     Dosage: 2000 MG, QD

REACTIONS (14)
  - Hepatic cirrhosis [Fatal]
  - Breast cancer stage III [Fatal]
  - Crohn^s disease [Fatal]
  - Lower respiratory tract infection [Fatal]
  - Lupus vulgaris [Fatal]
  - Lupus-like syndrome [Fatal]
  - Pemphigus [Fatal]
  - Type 2 diabetes mellitus [Fatal]
  - Maternal exposure during pregnancy [Fatal]
  - Intentional product misuse [Fatal]
  - Prescribed overdose [Fatal]
  - Product use issue [Fatal]
  - Therapeutic product effect decreased [Fatal]
  - Treatment failure [Fatal]
